FAERS Safety Report 6866603-X (Version None)
Quarter: 2010Q3

REPORT INFORMATION
  Report Type: 
  Country: None (occurrence: None)
  Receive Date: 20100722
  Receipt Date: 20100718
  Transmission Date: 20110219
  Serious: Yes (Other)
  Sender: FDA-Public Use
  Company Number: CA-GENZYME-CERZ-1001406

PATIENT
  Sex: Female
  Weight: 61 kg

DRUGS (1)
  1. CEREZYME [Suspect]
     Indication: GAUCHER'S DISEASE
     Dosage: UNK
     Route: 042
     Dates: start: 19980115, end: 20090101

REACTIONS (2)
  - BLOOD COUNT ABNORMAL [None]
  - HIP ARTHROPLASTY [None]
